FAERS Safety Report 13647350 (Version 1)
Quarter: 2017Q2

REPORT INFORMATION
  Report Type: Report from Study
  Country: JP (occurrence: JP)
  Receive Date: 20170613
  Receipt Date: 20170613
  Transmission Date: 20170830
  Serious: Yes (Death, Other)
  Sender: FDA-Public Use
  Company Number: JP-MYLANLABS-2017M1034903

PATIENT

DRUGS (1)
  1. PACLITAXEL. [Suspect]
     Active Substance: PACLITAXEL
     Indication: GASTRIC CANCER
     Dosage: SINGLE INFUSION OF 80 MG/M2 OVER 60 MINUTES, ON DAYS 1, 8, AND 15 OF A 28 DAY CYCLE
     Route: 041

REACTIONS (1)
  - Interstitial lung disease [Fatal]
